FAERS Safety Report 21027053 (Version 1)
Quarter: 2022Q2

REPORT INFORMATION
  Report Type: Spontaneous
  Country: US (occurrence: US)
  Receive Date: 20220630
  Receipt Date: 20220630
  Transmission Date: 20220721
  Serious: Yes (Disabling)
  Sender: FDA-Public Use
  Company Number: US-PFIZER INC-PV202200011044

PATIENT
  Age: 49 Year
  Sex: Female

DRUGS (3)
  1. IBRANCE [Suspect]
     Active Substance: PALBOCICLIB
     Dosage: 125 MG, CYCLIC (QD 21 DAYS ON/7 DAYS OFF)
     Route: 048
     Dates: start: 20201029
  2. LETROZOLE [Concomitant]
     Active Substance: LETROZOLE
     Dosage: UNK
  3. HYOSCYAMINE [Concomitant]
     Active Substance: HYOSCYAMINE
     Dosage: UNK

REACTIONS (6)
  - Asthenia [Unknown]
  - Fall [Unknown]
  - Wrist fracture [Unknown]
  - Dysstasia [Unknown]
  - Hypokinesia [Unknown]
  - Product dose omission issue [Unknown]
